FAERS Safety Report 5816633-1 (Version None)
Quarter: 2008Q3

REPORT INFORMATION
  Report Type: 
  Country: None (occurrence: None)
  Receive Date: 20080721
  Receipt Date: 20080709
  Transmission Date: 20090109
  Serious: Yes (Life-Threatening, Hospitalization)
  Sender: FDA-Public Use
  Company Number: ES-PFIZER INC-2008034091

PATIENT
  Age: 80 Year
  Sex: Female

DRUGS (6)
  1. ALDACTONE [Suspect]
     Indication: HYPERTENSION
     Route: 048
  2. CARVEDILOL [Interacting]
     Indication: HYPERTENSION
     Dosage: DAILY DOSE:25MG-FREQ:BID - EVERY DAY
     Route: 048
  3. DIGOXIN [Interacting]
     Indication: ATRIAL FIBRILLATION
     Dosage: DAILY DOSE:.25MG-FREQ:QD - EVERY DAY
     Route: 048
  4. SUTRIL [Interacting]
     Indication: HYPERTENSION
     Dosage: DAILY DOSE:15MG-FREQ:QD - EVERY DAY
     Route: 048
  5. SINTROM [Concomitant]
     Indication: ATRIAL FIBRILLATION
     Route: 048
  6. ALLOPURINOL [Concomitant]
     Indication: GOUT
     Route: 048

REACTIONS (4)
  - BRADYCARDIA [None]
  - CARDIOACTIVE DRUG LEVEL INCREASED [None]
  - DRUG INTERACTION [None]
  - VOMITING [None]
